FAERS Safety Report 8931707 (Version 2)
Quarter: 2013Q2

REPORT INFORMATION
  Report Type: Report from Study
  Country: CA (occurrence: CA)
  Receive Date: 20121128
  Receipt Date: 20130524
  Transmission Date: 20140414
  Serious: Yes (Other)
  Sender: FDA-Public Use
  Company Number: CA-ROCHE-1156152

PATIENT
  Age: 58 Year
  Sex: Female

DRUGS (4)
  1. CAPECITABINE [Suspect]
     Indication: BREAST CANCER
     Dosage: DAILY
     Route: 048
     Dates: start: 2007, end: 2009
  2. CAPECITABINE [Suspect]
     Dosage: DAILY
     Route: 048
     Dates: start: 201112, end: 201203
  3. ATIVAN [Concomitant]
  4. ZOLOFT [Concomitant]

REACTIONS (1)
  - Disease progression [Not Recovered/Not Resolved]
